FAERS Safety Report 4485365-7 (Version None)
Quarter: 2004Q4

REPORT INFORMATION
  Report Type: 
  Country: None (occurrence: None)
  Receive Date: 20041025
  Receipt Date: 20041025
  Transmission Date: 20050328
  Serious: Yes (Life-Threatening, Hospitalization)
  Sender: FDA-Public Use
  Company Number: None

PATIENT
  Age: 50 Year
  Sex: Male
  Weight: 92.9874 kg

DRUGS (1)
  1. VIOXX [Suspect]
     Indication: NERVE COMPRESSION
     Dosage: DAILY
     Dates: start: 20020301, end: 20030604

REACTIONS (1)
  - PULMONARY EMBOLISM [None]
